FAERS Safety Report 23777002 (Version 2)
Quarter: 2024Q2

REPORT INFORMATION
  Report Type: Spontaneous
  Country: CN (occurrence: CN)
  Receive Date: 20240424
  Receipt Date: 20240502
  Transmission Date: 20240715
  Serious: Yes (Life-Threatening, Hospitalization, Other)
  Sender: FDA-Public Use
  Company Number: CN-SANDOZ-SDZ2024CN041942

PATIENT
  Sex: Female
  Weight: 64 kg

DRUGS (5)
  1. ZOLEDRONIC ACID [Suspect]
     Active Substance: ZOLEDRONIC ACID
     Indication: Osteoporosis
     Dosage: 5 MG
     Route: 042
     Dates: start: 20240420, end: 20240420
  2. ALFACALCIDOL [Concomitant]
     Active Substance: ALFACALCIDOL
     Indication: Osteoporosis
     Dosage: UNK
     Route: 048
  3. CALCITONIN [Concomitant]
     Active Substance: CALCITONIN
     Indication: Osteoporosis
     Dosage: UNK
     Route: 030
  4. CALCIUM CARBONATE [Concomitant]
     Active Substance: CALCIUM CARBONATE
     Indication: Osteoporosis
     Dosage: UNK
     Route: 065
  5. LORNOXICAM [Concomitant]
     Active Substance: LORNOXICAM
     Indication: Osteoporosis
     Route: 042

REACTIONS (9)
  - Atrial fibrillation [Unknown]
  - Hypokalaemia [Unknown]
  - Hypocalcaemia [Unknown]
  - Hypotension [Unknown]
  - Pyrexia [Unknown]
  - Pain [Unknown]
  - Decreased appetite [Unknown]
  - Chills [Unknown]
  - Chest discomfort [Unknown]
